FAERS Safety Report 8295962 (Version 2)
Quarter: 2012Q4

REPORT INFORMATION
  Report Type: 
  Country: US (occurrence: US)
  Receive Date: 20111216
  Receipt Date: 20121218
  Transmission Date: 20130627
  Serious: No
  Sender: FDA-Public Use
  Company Number: US-BRISTOL-MYERS SQUIBB COMPANY-16034787

PATIENT
  Sex: Female

DRUGS (11)
  1. ABILIFY TABS 2 MG [Suspect]
     Indication: DEPRESSION
     Dates: start: 2011, end: 2011
  2. OMEPRAZOLE [Concomitant]
  3. METOPROLOL [Concomitant]
  4. VITAMIN C [Concomitant]
  5. FUROSEMIDE [Concomitant]
  6. LAMICTAL [Concomitant]
  7. CRESTOR [Concomitant]
  8. PRADAXA [Concomitant]
  9. INSULIN [Concomitant]
  10. NOVOLOG [Concomitant]
     Dosage: 1DF:30 Units
  11. LANTUS [Concomitant]
     Dosage: 1DF:30 Units

REACTIONS (1)
  - Insomnia [Unknown]
